FAERS Safety Report 6810289-7 (Version None)
Quarter: 2010Q2

REPORT INFORMATION
  Report Type: 
  Country: None (occurrence: None)
  Receive Date: 20100630
  Receipt Date: 20100622
  Transmission Date: 20101027
  Serious: Yes (Death)
  Sender: FDA-Public Use
  Company Number: CA-GENZYME-CERZ-1001365

PATIENT
  Age: 2 Year
  Sex: Male

DRUGS (1)
  1. CEREZYME [Suspect]
     Indication: GAUCHER'S DISEASE
     Dosage: 600 U, Q2W
     Route: 042
     Dates: start: 20090501, end: 20100610

REACTIONS (1)
  - DEATH [None]
